FAERS Safety Report 8825930 (Version 1)
Quarter: 2012Q4

REPORT INFORMATION
  Report Type: 
  Country: US (occurrence: US)
  Receive Date: 20121005
  Receipt Date: 20121005
  Transmission Date: 20130627
  Serious: Yes (Life-Threatening)
  Sender: FDA-Public Use
  Company Number: US-BRISTOL-MYERS SQUIBB COMPANY-16995755

PATIENT
  Age: 4 Year
  Sex: Male
  Weight: 20 kg

DRUGS (1)
  1. MEGACE [Suspect]
     Indication: INCREASED APPETITE

REACTIONS (2)
  - Septic shock [Recovering/Resolving]
  - Adrenal suppression [Recovering/Resolving]
